FAERS Safety Report 17709639 (Version 3)
Quarter: 2021Q3

REPORT INFORMATION
  Report Type: Spontaneous
  Country: US (occurrence: US)
  Receive Date: 20200427
  Receipt Date: 20210830
  Transmission Date: 20211014
  Serious: Yes (Death, Other)
  Sender: FDA-Public Use
  Company Number: US-ASTRAZENECA-2020SE54382

PATIENT
  Age: 72 Year
  Sex: Male
  Weight: 85.3 kg

DRUGS (36)
  1. LOVENOX [Concomitant]
     Active Substance: ENOXAPARIN SODIUM
  2. SMZ?TMP [Concomitant]
     Active Substance: SULFAMETHOXAZOLE\TRIMETHOPRIM
  3. LOPRESSOR [Concomitant]
     Active Substance: METOPROLOL TARTRATE
  4. ROSUVASTATIN. [Concomitant]
     Active Substance: ROSUVASTATIN
     Indication: BLOOD CHOLESTEROL ABNORMAL
     Dates: start: 2016, end: 2017
  5. METRONIDAZOLONE [Concomitant]
  6. COZAAR [Concomitant]
     Active Substance: LOSARTAN POTASSIUM
  7. DOXAZOSIN [Concomitant]
     Active Substance: DOXAZOSIN MESYLATE
  8. ALBUTEROL. [Concomitant]
     Active Substance: ALBUTEROL
  9. JANUVIA [Concomitant]
     Active Substance: SITAGLIPTIN PHOSPHATE
  10. JANUMET [Concomitant]
     Active Substance: METFORMIN HYDROCHLORIDE\SITAGLIPTIN PHOSPHATE
  11. GLYBURIDE. [Concomitant]
     Active Substance: GLYBURIDE
  12. NEXIUM [Suspect]
     Active Substance: ESOMEPRAZOLE MAGNESIUM
     Indication: GASTROOESOPHAGEAL REFLUX DISEASE
     Route: 048
     Dates: start: 200601, end: 201301
  13. PREVACID [Suspect]
     Active Substance: LANSOPRAZOLE
     Indication: GASTROOESOPHAGEAL REFLUX DISEASE
     Route: 065
     Dates: start: 20060905
  14. ASPIRIN. [Concomitant]
     Active Substance: ASPIRIN
  15. PREDNISOLONE. [Concomitant]
     Active Substance: PREDNISOLONE
  16. ACARBOSE. [Concomitant]
     Active Substance: ACARBOSE
  17. NIACIN. [Concomitant]
     Active Substance: NIACIN
  18. CIPROFLOXACIN. [Concomitant]
     Active Substance: CIPROFLOXACIN
     Indication: INFECTION
     Dates: start: 2013
  19. CRESTOR [Concomitant]
     Active Substance: ROSUVASTATIN CALCIUM
     Indication: BLOOD CHOLESTEROL ABNORMAL
     Dates: start: 2012, end: 2016
  20. LANTUS SOLOSTAR [Concomitant]
     Active Substance: INSULIN GLARGINE
  21. NEXIUM [Suspect]
     Active Substance: ESOMEPRAZOLE MAGNESIUM
     Indication: GASTROOESOPHAGEAL REFLUX DISEASE
     Route: 048
     Dates: start: 20060101, end: 20130101
  22. OMEPRAZOLE. [Suspect]
     Active Substance: OMEPRAZOLE
     Indication: GASTROOESOPHAGEAL REFLUX DISEASE
     Route: 065
     Dates: start: 20130419, end: 20160611
  23. NEURONTIN [Concomitant]
     Active Substance: GABAPENTIN
  24. CILOSTAZOL. [Concomitant]
     Active Substance: CILOSTAZOL
  25. MELOXICAM. [Concomitant]
     Active Substance: MELOXICAM
     Indication: ANTIINFLAMMATORY THERAPY
     Dates: start: 2012, end: 2013
  26. ATORVASTATIN [Concomitant]
     Active Substance: ATORVASTATIN
     Indication: BLOOD CHOLESTEROL ABNORMAL
     Dates: start: 2013
  27. FAMOTIDINE. [Concomitant]
     Active Substance: FAMOTIDINE
     Dates: start: 2016, end: 2017
  28. GABAPENTIN. [Concomitant]
     Active Substance: GABAPENTIN
  29. GLIMEPIRIDE. [Concomitant]
     Active Substance: GLIMEPIRIDE
  30. METOPROLOL TARTRATE. [Concomitant]
     Active Substance: METOPROLOL TARTRATE
  31. ZETIA [Concomitant]
     Active Substance: EZETIMIBE
  32. ZOLOFT [Concomitant]
     Active Substance: SERTRALINE HYDROCHLORIDE
  33. PRAVACHOL [Concomitant]
     Active Substance: PRAVASTATIN SODIUM
  34. LISINOPRIL. [Concomitant]
     Active Substance: LISINOPRIL
     Indication: HYPERTENSION
     Dates: start: 2011, end: 2017
  35. TIZANIDINE. [Concomitant]
     Active Substance: TIZANIDINE
  36. FINASTERIDE. [Concomitant]
     Active Substance: FINASTERIDE

REACTIONS (2)
  - Chronic kidney disease [Not Recovered/Not Resolved]
  - Chronic kidney disease-mineral and bone disorder [Unknown]

NARRATIVE: CASE EVENT DATE: 2014
